FAERS Safety Report 4665775-5 (Version None)
Quarter: 2005Q2

REPORT INFORMATION
  Report Type: 
  Country: None (occurrence: None)
  Receive Date: 20050517
  Receipt Date: 20050517
  Transmission Date: 20051028
  Serious: Yes (Hospitalization)
  Sender: FDA-Public Use
  Company Number: None

PATIENT
  Sex: Female

DRUGS (1)
  1. NOSCAPINE [Suspect]
     Dosage: 3 GMS/DAY

REACTIONS (3)
  - DRUG TOXICITY [None]
  - EMBOLISM [None]
  - THROMBOSIS [None]
